FAERS Safety Report 24038675 (Version 3)
Quarter: 2024Q3

REPORT INFORMATION
  Report Type: Spontaneous
  Country: DE (occurrence: DE)
  Receive Date: 20240702
  Receipt Date: 20240712
  Transmission Date: 20241016
  Serious: Yes (Other)
  Sender: AUROBINDO
  Company Number: DE-BRISTOL-MYERS SQUIBB COMPANY-2024-048078

PATIENT
  Age: 64 Year
  Sex: Male
  Weight: 92 kg

DRUGS (4)
  1. OXALIPLATIN [Suspect]
     Active Substance: OXALIPLATIN
     Indication: Gastric cancer
     Dosage: 179 MILLIGRAM, TOTAL
     Route: 042
     Dates: start: 20231108, end: 20240510
  2. OPDIVO [Suspect]
     Active Substance: NIVOLUMAB
     Indication: Gastric cancer
     Dosage: 240 MILLIGRAM, 14 TOTAL
     Route: 042
     Dates: start: 20231107
  3. FLUOROURACIL [Suspect]
     Active Substance: FLUOROURACIL
     Indication: Gastric cancer
     Dosage: 2110 MILLIGRAM, TOTAL
     Route: 042
     Dates: start: 20231108
  4. LEUCOVORIN CALCIUM [Concomitant]
     Active Substance: LEUCOVORIN CALCIUM
     Indication: Gastric cancer
     Dosage: 422 MILLIGRAM,1 TOTAL
     Route: 042
     Dates: start: 20231107, end: 20231107

REACTIONS (6)
  - Thrombocytopenia [Recovering/Resolving]
  - Foot fracture [Recovered/Resolved]
  - Mucosal inflammation [Recovering/Resolving]
  - Liver function test increased [Recovering/Resolving]
  - Catheter site extravasation [Recovered/Resolved]
  - Paraesthesia [Not Recovered/Not Resolved]

NARRATIVE: CASE EVENT DATE: 20240306
